FAERS Safety Report 18657764 (Version 2)
Quarter: 2025Q3

REPORT INFORMATION
  Report Type: Report from Study
  Country: EU (occurrence: EU)
  Receive Date: 20201223
  Receipt Date: 20250706
  Transmission Date: 20251020
  Serious: Yes (Death, Congenital Anomaly)
  Sender: AUROBINDO
  Company Number: EU-MYLANLABS-2020M1104989

PATIENT
  Sex: Male

DRUGS (4)
  1. PAROXETINE [Suspect]
     Active Substance: PAROXETINE
     Indication: Antidepressant therapy
     Route: 064
  2. ZOPICLONE [Suspect]
     Active Substance: ZOPICLONE
     Indication: Product used for unknown indication
     Route: 064
  3. DESOGESTREL\ETHINYL ESTRADIOL [Suspect]
     Active Substance: DESOGESTREL\ETHINYL ESTRADIOL
     Indication: Product used for unknown indication
     Route: 064
  4. ETIFOXINE [Suspect]
     Active Substance: ETIFOXINE
     Indication: Product used for unknown indication
     Route: 064

REACTIONS (2)
  - Congenital anomaly [Fatal]
  - Foetal exposure during pregnancy [Fatal]
